FAERS Safety Report 6802444-7 (Version None)
Quarter: 2010Q2

REPORT INFORMATION
  Report Type: 
  Country: None (occurrence: None)
  Receive Date: 20100628
  Receipt Date: 20100616
  Transmission Date: 20101027
  Serious: No
  Sender: FDA-Public Use
  Company Number: US-BIOGENIDEC-2010BI020643

PATIENT
  Age: 33 Year
  Sex: Female

DRUGS (3)
  1. AVONEX [Suspect]
     Indication: MULTIPLE SCLEROSIS
     Route: 030
     Dates: start: 20100603, end: 20100601
  2. AVONEX [Suspect]
     Route: 030
     Dates: start: 20100609, end: 20100601
  3. AVONEX [Suspect]
     Route: 030
     Dates: start: 20100615

REACTIONS (3)
  - HEADACHE [None]
  - NECK PAIN [None]
  - TREMOR [None]
